FAERS Safety Report 19834583 (Version 1)
Quarter: 2021Q3

REPORT INFORMATION
  Report Type: Report from Study
  Country: None (occurrence: PR)
  Receive Date: 20210914
  Receipt Date: 20210914
  Transmission Date: 20211014
  Serious: Yes (Other)
  Sender: FDA-Public Use
  Company Number: PR-ABBVIE-21K-131-4073526-00

PATIENT
  Age: 57 Year
  Sex: Female
  Weight: 68.1 kg

DRUGS (8)
  1. COVID?19 VACCINE MRNA [Concomitant]
     Indication: COVID-19 IMMUNISATION
     Dosage: 1ST DOSE
     Route: 030
     Dates: start: 20210623, end: 20210623
  2. SULINDAC. [Concomitant]
     Active Substance: SULINDAC
     Indication: INFLAMMATION
  3. SULINDAC. [Concomitant]
     Active Substance: SULINDAC
     Indication: RHEUMATOID ARTHRITIS
     Route: 048
     Dates: start: 202103
  4. HUMIRA [Suspect]
     Active Substance: ADALIMUMAB
     Indication: RHEUMATOID ARTHRITIS
     Route: 058
     Dates: start: 2020
  5. SULINDAC. [Concomitant]
     Active Substance: SULINDAC
     Indication: PAIN
  6. METFORMIN [Concomitant]
     Active Substance: METFORMIN HYDROCHLORIDE
     Indication: DIABETES MELLITUS
     Route: 048
     Dates: start: 202012
  7. COVID?19 VACCINE MRNA [Concomitant]
     Dosage: 2ND DOSE
     Route: 030
     Dates: start: 20210725, end: 20210725
  8. RELAFEN [Concomitant]
     Active Substance: NABUMETONE
     Indication: PAIN
     Route: 048
     Dates: start: 202103

REACTIONS (5)
  - Diabetes mellitus [Not Recovered/Not Resolved]
  - Benign breast neoplasm [Not Recovered/Not Resolved]
  - Inflammation [Not Recovered/Not Resolved]
  - Fungal skin infection [Recovered/Resolved]
  - Cellulitis [Not Recovered/Not Resolved]

NARRATIVE: CASE EVENT DATE: 2020
